FAERS Safety Report 6383011-9 (Version None)
Quarter: 2009Q3

REPORT INFORMATION
  Report Type: 
  Country: None (occurrence: None)
  Receive Date: 20090924
  Receipt Date: 20090422
  Transmission Date: 20100115
  Serious: No
  Sender: FDA-Public Use
  Company Number: US-CVT-090220

PATIENT
  Age: 70 Year
  Sex: Female
  Weight: 65.3 kg

DRUGS (8)
  1. RANEXA [Suspect]
     Indication: ANGINA PECTORIS
     Dosage: 500 MG, BID, ORAL
     Route: 048
     Dates: start: 20090304
  2. DYAZIDE [Concomitant]
  3. DIOVAN [Concomitant]
  4. LIPITOR [Concomitant]
  5. ASPIRIN [Concomitant]
  6. GLUCOPHAGE /00082701/ (METFORMIN) [Concomitant]
  7. GLIMEPIRIDE [Concomitant]
  8. METOPROLOL TARTRATE [Concomitant]

REACTIONS (1)
  - CHROMATURIA [None]
